FAERS Safety Report 13407334 (Version 1)
Quarter: 2017Q2

REPORT INFORMATION
  Report Type: Spontaneous
  Country: US (occurrence: US)
  Receive Date: 20170405
  Receipt Date: 20170405
  Transmission Date: 20170830
  Serious: Yes (Other)
  Sender: FDA-Public Use
  Company Number: US-IMPAX LABORATORIES, INC-2017-IPXL-00800

PATIENT
  Age: 36 Year
  Sex: Female

DRUGS (1)
  1. DIGOXIN. [Suspect]
     Active Substance: DIGOXIN
     Indication: WRONG DRUG ADMINISTERED
     Dosage: 375 MCG, UNK
     Route: 037

REACTIONS (4)
  - Neuronal neuropathy [Recovering/Resolving]
  - Wrong drug administered [Unknown]
  - Incorrect product storage [Unknown]
  - Unresponsive to stimuli [Recovering/Resolving]
